FAERS Safety Report 18628182 (Version 1)
Quarter: 2020Q4

REPORT INFORMATION
  Report Type: Spontaneous
  Country: PL (occurrence: PL)
  Receive Date: 20201217
  Receipt Date: 20201217
  Transmission Date: 20210114
  Serious: Yes (Death, Hospitalization)
  Sender: FDA-Public Use
  Company Number: PL-TEVA-2020-PL-1857959

PATIENT
  Age: 2 Year
  Sex: Female

DRUGS (9)
  1. L-ASPARAGINASE [Suspect]
     Active Substance: ASPARAGINASE
     Indication: B PRECURSOR TYPE ACUTE LEUKAEMIA
     Dosage: 10 000 U/M2, PART OF PROTOCOL II; ON DAYS 8,11,15,18
     Route: 065
  2. MEROPENEM. [Concomitant]
     Active Substance: MEROPENEM
     Indication: H1N1 INFLUENZA
     Route: 065
  3. LIPOSOMAL AMPHOTERICIN B [Concomitant]
     Active Substance: AMPHOTERICIN B
     Indication: H1N1 INFLUENZA
     Route: 065
  4. VINCRISTINE [Suspect]
     Active Substance: VINCRISTINE
     Indication: B PRECURSOR TYPE ACUTE LEUKAEMIA
     Dosage: 1.5 MG/M2 DAILY; PART OF PROTOCOL II; ON DAYS 8,15, 22, 29
     Route: 065
  5. OSELTAMIVIR [Suspect]
     Active Substance: OSELTAMIVIR
     Indication: H1N1 INFLUENZA
     Dosage: 45 MILLIGRAM DAILY;
     Route: 065
  6. VANCOMYCIN [Concomitant]
     Active Substance: VANCOMYCIN
     Indication: H1N1 INFLUENZA
     Route: 065
  7. AMANTADINE SULFATE [Concomitant]
     Active Substance: AMANTADINE SULFATE
     Indication: H1N1 INFLUENZA
     Route: 065
  8. DOXORUBICIN [Suspect]
     Active Substance: DOXORUBICIN
     Indication: B PRECURSOR TYPE ACUTE LEUKAEMIA
     Dosage: 30 MG/M2 DAILY; PART OF PROTOCOL II; ON DAYS 8,15,22,29
     Route: 065
  9. DEXAMETHASONE. [Suspect]
     Active Substance: DEXAMETHASONE
     Indication: B PRECURSOR TYPE ACUTE LEUKAEMIA
     Dosage: 10 MG/M2 DAILY; PART OF PROTOCOL II; SCHEDULED FOR 21 DAYS
     Route: 065

REACTIONS (5)
  - Respiratory failure [Fatal]
  - Drug ineffective [Unknown]
  - Pulmonary haemorrhage [Fatal]
  - H1N1 influenza [Fatal]
  - Pneumonia [Fatal]
